FAERS Safety Report 9757575 (Version 1)
Quarter: 2013Q4

REPORT INFORMATION
  Report Type: Spontaneous
  Country: US (occurrence: US)
  Receive Date: 20131216
  Receipt Date: 20131216
  Transmission Date: 20140711
  Serious: Yes (Life-Threatening)
  Sender: FDA-Public Use
  Company Number: US-ROCHE-1319489

PATIENT
  Age: 72 Year
  Sex: Female

DRUGS (4)
  1. XELODA [Suspect]
     Indication: PRODUCT USED FOR UNKNOWN INDICATION
     Dosage: 4 TABS
     Route: 048
     Dates: start: 20130611
  2. LOVASTATIN [Concomitant]
  3. ONDANSETRON [Concomitant]
  4. ASA [Concomitant]
     Route: 065

REACTIONS (5)
  - Aphagia [Unknown]
  - Stomatitis [Unknown]
  - Skin exfoliation [Unknown]
  - Dysphagia [Unknown]
  - Dysphagia [Unknown]
